FAERS Safety Report 24391185 (Version 1)
Quarter: 2024Q4

REPORT INFORMATION
  Report Type: Spontaneous
  Country: IL (occurrence: IL)
  Receive Date: 20241003
  Receipt Date: 20241003
  Transmission Date: 20250115
  Serious: Yes (Other)
  Sender: NOVARTIS
  Company Number: IL-002147023-NVSC2024IL191410

PATIENT
  Age: 29 Year
  Sex: Female

DRUGS (1)
  1. CYCLOSPORINE [Suspect]
     Active Substance: CYCLOSPORINE
     Indication: Aplastic anaemia
     Dosage: 400 MG, QD (200 MG, 2/D)
     Route: 048

REACTIONS (4)
  - Posterior reversible encephalopathy syndrome [Unknown]
  - Generalised tonic-clonic seizure [Unknown]
  - Stupor [Unknown]
  - Off label use [Unknown]
